FAERS Safety Report 9192524 (Version 1)
Quarter: 2013Q1

REPORT INFORMATION
  Report Type: Spontaneous
  Country: HK (occurrence: HK)
  Receive Date: 20130327
  Receipt Date: 20130327
  Transmission Date: 20140127
  Serious: Yes (Death)
  Sender: FDA-Public Use
  Company Number: HK-CELGENEUS-075-21880-13032834

PATIENT
  Age: 53 Year
  Sex: Male

DRUGS (1)
  1. REVLIMID [Suspect]
     Indication: PLASMA CELL MYELOMA
     Dosage: 10 MILLIGRAM
     Route: 048
     Dates: start: 20100202, end: 20130215

REACTIONS (1)
  - Plasma cell myeloma [Fatal]
